FAERS Safety Report 10006311 (Version 1)
Quarter: 2014Q1

REPORT INFORMATION
  Report Type: Spontaneous
  Country: US (occurrence: US)
  Receive Date: 20140313
  Receipt Date: 20140313
  Transmission Date: 20141002
  Serious: Yes (Other)
  Sender: FDA-Public Use
  Company Number: US-ROCHE-1362807

PATIENT
  Sex: Male

DRUGS (1)
  1. LUCENTIS [Suspect]
     Indication: AGE-RELATED MACULAR DEGENERATION
     Route: 065
     Dates: start: 2010

REACTIONS (6)
  - Blindness unilateral [Unknown]
  - Eye haemorrhage [Unknown]
  - Nightmare [Unknown]
  - Visual acuity reduced [Unknown]
  - Disease progression [Unknown]
  - Drug ineffective [Unknown]
